FAERS Safety Report 14948091 (Version 1)
Quarter: 2018Q2

REPORT INFORMATION
  Report Type: Spontaneous
  Country: US (occurrence: US)
  Receive Date: 20180529
  Receipt Date: 20180529
  Transmission Date: 20180711
  Serious: Yes (Other)
  Sender: FDA-Public Use
  Company Number: US-BAYER-2018-100693

PATIENT
  Age: 38 Year
  Sex: Female

DRUGS (2)
  1. MIRENA [Suspect]
     Active Substance: LEVONORGESTREL
     Indication: CONTRACEPTION
     Dosage: 20 MCG/24HR, CONT
     Route: 015
     Dates: end: 2018
  2. IBUPROFEN. [Concomitant]
     Active Substance: IBUPROFEN
     Indication: PAIN PROPHYLAXIS
     Dosage: UNK
     Dates: start: 2018

REACTIONS (10)
  - Middle insomnia [None]
  - Post procedural haemorrhage [Recovering/Resolving]
  - Hypomenorrhoea [None]
  - Ovulation pain [None]
  - Procedural pain [None]
  - Post procedural discomfort [None]
  - Post procedural haemorrhage [None]
  - Procedural anxiety [None]
  - Night sweats [Recovering/Resolving]
  - Procedural pain [None]

NARRATIVE: CASE EVENT DATE: 2018
